FAERS Safety Report 11151734 (Version 2)
Quarter: 2015Q2

REPORT INFORMATION
  Report Type: Report from Study
  Country: VE (occurrence: VE)
  Receive Date: 20150601
  Receipt Date: 20150615
  Transmission Date: 20150821
  Serious: Yes (Hospitalization)
  Sender: FDA-Public Use
  Company Number: VE-ABBVIE-15K-178-1397742-00

PATIENT
  Sex: Female

DRUGS (1)
  1. HUMIRA [Suspect]
     Active Substance: ADALIMUMAB
     Indication: PSORIASIS
     Route: 058
     Dates: start: 20090702, end: 20150114

REACTIONS (6)
  - Depressed level of consciousness [Unknown]
  - Infection [Recovering/Resolving]
  - Drug hypersensitivity [Recovering/Resolving]
  - General physical health deterioration [Unknown]
  - Abdominal injury [Recovering/Resolving]
  - Necrosis [Recovered/Resolved]

NARRATIVE: CASE EVENT DATE: 2015
